FAERS Safety Report 7791751-X (Version None)
Quarter: 2011Q4

REPORT INFORMATION
  Report Type: 
  Country: None (occurrence: None)
  Receive Date: 20111003
  Receipt Date: 20110927
  Transmission Date: 20120403
  Serious: No
  Sender: FDA-Public Use
  Company Number: US-PFIZER INC-2011230787

PATIENT
  Sex: Female
  Weight: 113.4 kg

DRUGS (7)
  1. COLESTIPOL HYDROCHLORIDE [Suspect]
     Indication: HYPERCHOLESTEROLAEMIA
     Dosage: 1 G, 1X/DAY
     Route: 048
     Dates: start: 20110815, end: 20110915
  2. METFORMIN [Concomitant]
     Dosage: 500 MG, 1X/DAY
  3. TENORMIN [Concomitant]
     Dosage: 25 MG, UNK
  4. AMBIEN CR [Concomitant]
     Dosage: 12.5 MG, 1X/DAY
  5. CYMBALTA [Concomitant]
     Indication: FIBROMYALGIA
     Dosage: UNK
  6. SINGULAIR [Concomitant]
     Dosage: UNK
  7. ZYRTEC [Concomitant]
     Dosage: 10 MG, UNK

REACTIONS (2)
  - PRODUCT SOLUBILITY ABNORMAL [None]
  - DRUG INEFFECTIVE [None]
